FAERS Safety Report 8220383-4 (Version None)
Quarter: 2012Q1

REPORT INFORMATION
  Report Type: 
  Country: None (occurrence: None)
  Receive Date: 20120320
  Receipt Date: 20120313
  Transmission Date: 20120608
  Serious: Yes (Death)
  Sender: FDA-Public Use
  Company Number: US-JNJFOC-20120308206

PATIENT

DRUGS (3)
  1. OLANZAPINE [Suspect]
     Indication: DEMENTIA
     Route: 065
  2. ARIPIPRAZOLE [Suspect]
     Indication: DEMENTIA
     Route: 065
  3. RISPERIDONE [Suspect]
     Indication: DEMENTIA
     Route: 065

REACTIONS (8)
  - EXTRAPYRAMIDAL DISORDER [None]
  - AKATHISIA [None]
  - WEIGHT INCREASED [None]
  - SEDATION [None]
  - CEREBROVASCULAR ACCIDENT [None]
  - DEATH [None]
  - FATIGUE [None]
  - URINARY TRACT INFECTION [None]
